FAERS Safety Report 13330923 (Version 6)
Quarter: 2017Q3

REPORT INFORMATION
  Report Type: Spontaneous
  Country: US (occurrence: US)
  Receive Date: 20170314
  Receipt Date: 20170901
  Transmission Date: 20171127
  Serious: Yes (Other)
  Sender: FDA-Public Use
  Company Number: PHEH2017US007535

PATIENT
  Age: 21 Year
  Sex: Female
  Weight: 61.23 kg

DRUGS (2)
  1. ZOFRAN [Suspect]
     Active Substance: ONDANSETRON HYDROCHLORIDE
     Indication: VOMITING IN PREGNANCY
     Dosage: 8 MG, UNK
     Route: 048
     Dates: start: 20031101, end: 200402
  2. ZOFRAN [Suspect]
     Active Substance: ONDANSETRON HYDROCHLORIDE
     Indication: VOMITING IN PREGNANCY
     Dosage: 8 MG, UNK
     Route: 042
     Dates: start: 20031101, end: 200402

REACTIONS (18)
  - Dysplasia [Unknown]
  - Amniotic cavity infection [Unknown]
  - Premature rupture of membranes [Unknown]
  - Maternal exposure during pregnancy [Unknown]
  - Injury [Unknown]
  - Product use in unapproved indication [Unknown]
  - Gestational hypertension [Unknown]
  - Colitis ulcerative [Unknown]
  - Metaplasia [Unknown]
  - Bronchitis [Unknown]
  - Adenoma benign [Unknown]
  - Emotional distress [Unknown]
  - Anaemia [Unknown]
  - Premature delivery [Unknown]
  - Breech presentation [Unknown]
  - Abdominal pain [Unknown]
  - Cervicitis [Unknown]
  - Eczema [Unknown]

NARRATIVE: CASE EVENT DATE: 20040713
